FAERS Safety Report 6805285-X (Version None)
Quarter: 2010Q2

REPORT INFORMATION
  Report Type: 
  Country: None (occurrence: None)
  Receive Date: 20100628
  Receipt Date: 20071004
  Transmission Date: 20101027
  Serious: No
  Sender: FDA-Public Use
  Company Number: US-PFIZER INC-2007083428

PATIENT
  Sex: Female
  Weight: 86.8 kg

DRUGS (2)
  1. XALATAN [Suspect]
     Indication: GLAUCOMA
  2. PRINZIDE [Concomitant]
     Indication: HYPERTENSION

REACTIONS (1)
  - DARK CIRCLES UNDER EYES [None]
